FAERS Safety Report 12228719 (Version 1)
Quarter: 2016Q1

REPORT INFORMATION
  Report Type: Spontaneous
  Country: US (occurrence: None)
  Receive Date: 20160331
  Receipt Date: 20160331
  Transmission Date: 20160526
  Serious: No
  Sender: FDA-Public Use
  Company Number: None

PATIENT
  Age: 69 Year
  Sex: Male
  Weight: 91.17 kg

DRUGS (1)
  1. COLGATE OPTIC WHITE HIGH IMPACT FLUORIDE [Suspect]
     Active Substance: SODIUM MONOFLUOROPHOSPHATE
     Indication: DENTAL COSMETIC PROCEDURE
     Dosage: 3 TEASPOON(S) USED ONCE TAKEN BY MOUTH
     Route: 048
     Dates: start: 20160316, end: 20160316

REACTIONS (1)
  - Throat irritation [None]

NARRATIVE: CASE EVENT DATE: 20160316
